FAERS Safety Report 14688667 (Version 2)
Quarter: 2019Q1

REPORT INFORMATION
  Report Type: Spontaneous
  Country: ES (occurrence: ES)
  Receive Date: 20180328
  Receipt Date: 20190201
  Transmission Date: 20190417
  Serious: Yes (Hospitalization)
  Sender: FDA-Public Use
  Company Number: ES-TEVA-2018-ES-871950

PATIENT
  Age: 2 Year
  Sex: Male

DRUGS (4)
  1. PIRAZINAMIDA (2152A) [Interacting]
     Active Substance: PYRAZINAMIDE
     Indication: TUBERCULOSIS
     Dosage: 375 MG / 12H
     Route: 048
     Dates: start: 20171012, end: 20171020
  2. VALPROICO ACIDO (3194A) [Suspect]
     Active Substance: VALPROIC ACID
     Indication: EPILEPSY
     Dosage: 300 MILLIGRAM DAILY; 150 MG / 12H
     Route: 048
     Dates: start: 20171009, end: 20171020
  3. RIFAMPICINA (2273A) [Interacting]
     Active Substance: RIFAMPIN
     Indication: TUBERCULOSIS
     Dosage: 170 MG / 24H
     Route: 048
     Dates: start: 20171012, end: 20171020
  4. ISONIAZIDA (1637A) [Interacting]
     Active Substance: ISONIAZID
     Indication: TUBERCULOSIS
     Dosage: 125 MG/4H
     Route: 048
     Dates: start: 20171012, end: 20171020

REACTIONS (2)
  - Hepatitis [Recovered/Resolved]
  - Drug interaction [Unknown]

NARRATIVE: CASE EVENT DATE: 20171020
